FAERS Safety Report 6860781-4 (Version None)
Quarter: 2010Q3

REPORT INFORMATION
  Report Type: 
  Country: None (occurrence: None)
  Receive Date: 20100719
  Receipt Date: 20100719
  Transmission Date: 20110219
  Serious: Yes (Life-Threatening, Hospitalization)
  Sender: FDA-Public Use
  Company Number: None

PATIENT
  Age: 73 Year
  Sex: Male
  Weight: 73.4827 kg

DRUGS (2)
  1. LISINOPRIL [Suspect]
     Indication: PROPHYLAXIS
     Dosage: 20 MG DAILY PO
     Route: 048
     Dates: start: 20100616, end: 20100716
  2. LISINOPRIL [Suspect]
     Indication: RENAL FAILURE
     Dosage: 20 MG DAILY PO
     Route: 048
     Dates: start: 20100616, end: 20100716

REACTIONS (5)
  - BLOOD PRESSURE DECREASED [None]
  - FALL [None]
  - HEART RATE DECREASED [None]
  - HYPOAESTHESIA [None]
  - JOINT SWELLING [None]
